FAERS Safety Report 5211204-2 (Version None)
Quarter: 2006Q4

REPORT INFORMATION
  Report Type: 
  Country: None (occurrence: None)
  Receive Date: 20061114
  Receipt Date: 20060906
  Transmission Date: 20070319
  Serious: No
  Sender: FDA-Public Use
  Company Number: S06-USA-03623-01

PATIENT
  Age: 82 Year
  Sex: Male

DRUGS (8)
  1. NAMENDA [Suspect]
     Indication: COGNITIVE DISORDER
     Dosage: 5 MG QD PO
     Route: 048
     Dates: start: 20060801, end: 20060801
  2. NAMENDA [Suspect]
     Indication: COGNITIVE DISORDER
     Dosage: 5 MG BID PO
     Route: 048
     Dates: start: 20060801, end: 20060801
  3. NAMENDA [Suspect]
     Indication: COGNITIVE DISORDER
     Dosage: 15 MG QD PO
     Route: 048
     Dates: start: 20060801, end: 20060801
  4. NAMENDA [Suspect]
     Indication: COGNITIVE DISORDER
     Dosage: 10 MG BID PO
     Route: 047
     Dates: start: 20060801
  5. ARICEPT [Concomitant]
  6. PLAVIX [Concomitant]
  7. LAMISIL [Concomitant]
  8. CHOLESTEROL MEDICATION (NOS) [Concomitant]

REACTIONS (4)
  - MEMORY IMPAIRMENT [None]
  - RHINORRHOEA [None]
  - SINUS CONGESTION [None]
  - SINUS HEADACHE [None]
